FAERS Safety Report 4323677-8 (Version None)
Quarter: 2004Q1

REPORT INFORMATION
  Report Type: 
  Country: None (occurrence: None)
  Receive Date: 20040322
  Receipt Date: 20040305
  Transmission Date: 20041129
  Serious: Yes (Other)
  Sender: FDA-Public Use
  Company Number: 353607

PATIENT
  Sex: Female

DRUGS (1)
  1. KETOROLAC TROMETHAMINE [Suspect]
     Indication: MIGRAINE
     Dosage: 1 DOSE FORM DAILY
     Dates: start: 20031203

REACTIONS (1)
  - ACUTE RESPIRATORY DISTRESS SYNDROME [None]
